FAERS Safety Report 5353481-3 (Version None)
Quarter: 2007Q2

REPORT INFORMATION
  Report Type: 
  Country: None (occurrence: None)
  Receive Date: 20070612
  Receipt Date: 20070605
  Transmission Date: 20071010
  Serious: Yes (Other)
  Sender: FDA-Public Use
  Company Number: PHBS2007CH09361

PATIENT
  Sex: Female

DRUGS (1)
  1. ZOMETA [Suspect]
     Indication: OSTEOPOROSIS
     Dosage: UNK, ONCE/SINGLE
     Dates: start: 20050201

REACTIONS (9)
  - ALOPECIA [None]
  - FATIGUE [None]
  - LACRIMATION INCREASED [None]
  - MALAISE [None]
  - MALIGNANT TRANSFORMATION [None]
  - MOLE EXCISION [None]
  - RASH MACULAR [None]
  - RHINORRHOEA [None]
  - WEIGHT DECREASED [None]
